FAERS Safety Report 7708579-9 (Version None)
Quarter: 2011Q3

REPORT INFORMATION
  Report Type: 
  Country: None (occurrence: None)
  Receive Date: 20110825
  Receipt Date: 20110815
  Transmission Date: 20111222
  Serious: Yes (Hospitalization)
  Sender: FDA-Public Use
  Company Number: US-MYLANLABS-2011S1016980

PATIENT
  Age: 87 Year
  Sex: Female

DRUGS (2)
  1. FENTANYL-100 [Suspect]
     Dosage: CHANGED Q72H
     Route: 062
     Dates: start: 20110808, end: 20110814
  2. FENTANYL-100 [Suspect]
     Indication: PAIN
     Dosage: CHANGED Q72H
     Route: 062
     Dates: start: 20110128, end: 20110808

REACTIONS (3)
  - TOXICITY TO VARIOUS AGENTS [None]
  - INCORRECT DRUG ADMINISTRATION DURATION [None]
  - ACCIDENTAL OVERDOSE [None]
